FAERS Safety Report 20532434 (Version 1)
Quarter: 2022Q1

REPORT INFORMATION
  Report Type: Spontaneous
  Country: CN (occurrence: CN)
  Receive Date: 20220301
  Receipt Date: 20220301
  Transmission Date: 20220424
  Serious: Yes (Hospitalization, Other)
  Sender: FDA-Public Use
  Company Number: CN-009507513-2202CHN008110

PATIENT
  Age: 54 Year
  Sex: Male
  Weight: 52 kg

DRUGS (1)
  1. KEYTRUDA [Suspect]
     Active Substance: PEMBROLIZUMAB
     Indication: Squamous cell carcinoma of lung
     Dosage: 100 MG, ONCE
     Route: 041
     Dates: start: 20210801, end: 20210822

REACTIONS (3)
  - Immune-mediated neuropathy [Recovering/Resolving]
  - Lung neoplasm malignant [Unknown]
  - Underdose [Unknown]

NARRATIVE: CASE EVENT DATE: 20210801
